FAERS Safety Report 5602227-X (Version None)
Quarter: 2008Q1

REPORT INFORMATION
  Report Type: 
  Country: None (occurrence: None)
  Receive Date: 20080125
  Receipt Date: 20080115
  Transmission Date: 20080703
  Serious: Yes (Other)
  Sender: FDA-Public Use
  Company Number: PHBS2008BR00504

PATIENT
  Age: 68 Year
  Sex: Female
  Weight: 78 kg

DRUGS (6)
  1. FORASEQ [Suspect]
     Indication: BRONCHITIS
     Dosage: UNK, BID
  2. TRILEPTAL [Suspect]
     Indication: EPILEPSY
     Dosage: 1200 MG, BID
  3. TRILEPTAL [Suspect]
     Dosage: 1200 MG/D
     Route: 048
  4. DEPAKOTE [Concomitant]
     Indication: EPILEPSY
     Dosage: 500 MG, BID
     Route: 048
  5. CLONAZEPAM [Concomitant]
     Indication: EPILEPSY
     Dosage: 2 MG/D
     Route: 048
  6. CITALOPRAM [Concomitant]
     Indication: DEPRESSION
     Dosage: 20 MG, QD
     Route: 048

REACTIONS (8)
  - BEDRIDDEN [None]
  - CONFUSIONAL STATE [None]
  - CONVULSION [None]
  - FALL [None]
  - LUMBAR VERTEBRAL FRACTURE [None]
  - MOUTH INJURY [None]
  - SURGERY [None]
  - SYNCOPE [None]
